FAERS Safety Report 19510002 (Version 1)
Quarter: 2021Q3

REPORT INFORMATION
  Report Type: Spontaneous
  Country: US (occurrence: US)
  Receive Date: 20210708
  Receipt Date: 20210708
  Transmission Date: 20211014
  Serious: No
  Sender: FDA-Public Use
  Company Number: US-INTRA-CELLULAR THERAPIES, INC.-2021ICT00259

PATIENT
  Sex: Female

DRUGS (2)
  1. CAPLYTA [Suspect]
     Active Substance: LUMATEPERONE
     Indication: BIPOLAR DISORDER
     Dosage: UNK
     Dates: start: 202102, end: 2021
  2. CAPLYTA [Suspect]
     Active Substance: LUMATEPERONE
     Dosage: UNK
     Dates: start: 2021

REACTIONS (6)
  - Intentional dose omission [Recovered/Resolved]
  - Off label use [Not Recovered/Not Resolved]
  - Feeling abnormal [Unknown]
  - Malaise [Unknown]
  - Fall [Unknown]
  - Palpitations [Unknown]

NARRATIVE: CASE EVENT DATE: 2021
